FAERS Safety Report 24302584 (Version 2)
Quarter: 2024Q3

REPORT INFORMATION
  Report Type: Spontaneous
  Country: US (occurrence: CN)
  Receive Date: 20240910
  Receipt Date: 20240925
  Transmission Date: 20241017
  Serious: Yes (Other)
  Sender: JIANGSU HENGRUI MEDICINE
  Company Number: CN-Jiangsu Hengrui Medicine Co., Ltd.-2161418

PATIENT
  Age: 64 Year
  Sex: Male

DRUGS (4)
  1. CYCLOPHOSPHAMIDE [Suspect]
     Active Substance: CYCLOPHOSPHAMIDE
     Indication: Burkitt^s lymphoma
  2. VINCRISTINE [Suspect]
     Active Substance: VINCRISTINE
  3. METHOTREXATE [Suspect]
     Active Substance: METHOTREXATE
  4. DOXORUBICIN [Suspect]
     Active Substance: DOXORUBICIN

REACTIONS (4)
  - Ophthalmic herpes simplex [Recovering/Resolving]
  - Retinitis viral [Recovering/Resolving]
  - Leukopenia [Recovering/Resolving]
  - Cytomegalovirus chorioretinitis [Recovering/Resolving]
